FAERS Safety Report 6296739-6 (Version None)
Quarter: 2009Q3

REPORT INFORMATION
  Report Type: 
  Country: None (occurrence: None)
  Receive Date: 20090804
  Receipt Date: 20090729
  Transmission Date: 20100115
  Serious: Yes (Other)
  Sender: FDA-Public Use
  Company Number: CH-TEVA-204280ISR

PATIENT
  Sex: Male
  Weight: 2.57 kg

DRUGS (2)
  1. ZOLPIDEM [Suspect]
     Route: 064
     Dates: start: 20071116, end: 20071201
  2. OXAZEPAM [Suspect]
     Route: 064
     Dates: start: 20071116, end: 20080101

REACTIONS (2)
  - DRUG EXPOSURE DURING PREGNANCY [None]
  - FOETAL GROWTH RETARDATION [None]
